FAERS Safety Report 20487743 (Version 5)
Quarter: 2022Q2

REPORT INFORMATION
  Report Type: Spontaneous
  Country: JP (occurrence: JP)
  Receive Date: 20220218
  Receipt Date: 20220606
  Transmission Date: 20220720
  Serious: Yes (Other)
  Sender: FDA-Public Use
  Company Number: JP-NOVARTISPH-NVSJ2022JP003096

PATIENT
  Age: 86 Year
  Sex: Female
  Weight: 41 kg

DRUGS (10)
  1. ENTRESTO [Suspect]
     Active Substance: SACUBITRIL\VALSARTAN
     Indication: Cardiac failure chronic
     Dosage: 50 MG, BID
     Route: 048
     Dates: start: 20211223, end: 20220104
  2. ENTRESTO [Suspect]
     Active Substance: SACUBITRIL\VALSARTAN
     Indication: Cardiac valve disease
     Dosage: 100 MG, BID
     Route: 048
     Dates: start: 20220105, end: 20220119
  3. ENTRESTO [Suspect]
     Active Substance: SACUBITRIL\VALSARTAN
     Dosage: 200 MG, BID
     Route: 048
     Dates: start: 20220120, end: 20220213
  4. ENTRESTO [Suspect]
     Active Substance: SACUBITRIL\VALSARTAN
     Dosage: 100 MG, BID
     Route: 048
     Dates: start: 20220214, end: 20220318
  5. FUROSEMIDE [Suspect]
     Active Substance: FUROSEMIDE
     Indication: Cardiac failure chronic
     Dosage: 20 MG, BID
     Route: 048
     Dates: start: 20211223, end: 20220213
  6. FUROSEMIDE [Suspect]
     Active Substance: FUROSEMIDE
     Dosage: 20 MG, TID
     Route: 065
     Dates: start: 20220214, end: 20220318
  7. FUROSEMIDE [Suspect]
     Active Substance: FUROSEMIDE
     Dosage: 40 MG, TID
     Route: 048
     Dates: start: 20220319
  8. ESAXERENONE [Concomitant]
     Active Substance: ESAXERENONE
     Indication: Polyuria
     Dosage: 2.5 MG, QD
     Route: 048
     Dates: start: 20211223, end: 20220107
  9. BISOPROLOL FUMARATE [Concomitant]
     Active Substance: BISOPROLOL FUMARATE
     Indication: Cardiac failure chronic
     Dosage: 1.25 MG, BID
     Route: 048
     Dates: start: 20211223, end: 20220313
  10. SPIRONOLACTONE [Concomitant]
     Active Substance: SPIRONOLACTONE
     Indication: Polyuria
     Dosage: 25 MG, BID
     Route: 048
     Dates: start: 20220105, end: 20220313

REACTIONS (5)
  - Pemphigoid [Recovering/Resolving]
  - Blister [Recovering/Resolving]
  - Excessive granulation tissue [Recovering/Resolving]
  - Pustule [Recovering/Resolving]
  - Oedema peripheral [Recovered/Resolved]

NARRATIVE: CASE EVENT DATE: 20220213
